FAERS Safety Report 6312193-X (Version None)
Quarter: 2009Q3

REPORT INFORMATION
  Report Type: 
  Country: None (occurrence: None)
  Receive Date: 20090813
  Receipt Date: 20090813
  Transmission Date: 20100115
  Serious: Yes (Disabling)
  Sender: FDA-Public Use
  Company Number: None

PATIENT
  Weight: 80 kg

DRUGS (2)
  1. CLARVIS [Suspect]
     Indication: ACNE
     Dosage: 20 MG IN MORNING 40 MG AT NIGHT 1 A DAY
     Dates: start: 20051007, end: 20060307
  2. AMNESTEEM [Suspect]
     Dosage: 20 MG IN MORNING 20 MG AT NIGHT 40 MG AT NIGHT 1 A DAY

REACTIONS (14)
  - ALOPECIA [None]
  - ARTHRITIS [None]
  - ASTHENIA [None]
  - AUTOIMMUNE DISORDER [None]
  - BACK PAIN [None]
  - DIZZINESS [None]
  - DRUG INEFFECTIVE [None]
  - GENERAL PHYSICAL HEALTH DETERIORATION [None]
  - GROWING PAINS [None]
  - HAEMATOCHEZIA [None]
  - MALAISE [None]
  - NIGHT BLINDNESS [None]
  - THIRST [None]
  - UVEITIS [None]
